FAERS Safety Report 6322479-0 (Version None)
Quarter: 2009Q3

REPORT INFORMATION
  Report Type: 
  Country: None (occurrence: None)
  Receive Date: 20090824
  Receipt Date: 20090224
  Transmission Date: 20100115
  Serious: No
  Sender: FDA-Public Use
  Company Number: US-ABBOTT-09P-163-0559236-00

PATIENT
  Sex: Female

DRUGS (2)
  1. NIASPAN [Suspect]
     Indication: LDL/HDL RATIO
     Dosage: TOOK ONE DOSE
     Dates: start: 20090219, end: 20090219
  2. GLUCOPHAGE [Concomitant]
     Indication: HORMONE THERAPY
     Route: 048

REACTIONS (3)
  - FLUSHING [None]
  - PARAESTHESIA [None]
  - SENSORY DISTURBANCE [None]
